FAERS Safety Report 5398998-0 (Version None)
Quarter: 2007Q3

REPORT INFORMATION
  Report Type: 
  Country: None (occurrence: None)
  Receive Date: 20070702
  Receipt Date: 20070702
  Transmission Date: 20080115
  Serious: Yes (Hospitalization)
  Sender: FDA-Public Use
  Company Number: None

PATIENT
  Age: 48 Year
  Sex: Female
  Weight: 94 kg

DRUGS (1)
  1. IOPAMIDOL-300 [Suspect]
     Indication: COMPUTERISED TOMOGRAM
     Dosage: 150 MG IV X 1
     Route: 042
     Dates: start: 20070626

REACTIONS (5)
  - BLISTER [None]
  - INFUSION SITE CELLULITIS [None]
  - INFUSION SITE REACTION [None]
  - PARAESTHESIA [None]
  - TENDON PAIN [None]
